FAERS Safety Report 4744625-2 (Version None)
Quarter: 2005Q3

REPORT INFORMATION
  Report Type: 
  Country: None (occurrence: None)
  Receive Date: 20050808
  Receipt Date: 20050622
  Transmission Date: 20060218
  Serious: Yes (Disabling)
  Sender: FDA-Public Use
  Company Number: WAES 0506USA03238

PATIENT
  Age: 67 Year
  Sex: Female

DRUGS (3)
  1. FOSAMAX PLUS D [Suspect]
     Indication: OSTEOPOROSIS
     Dosage: 70MG/2800 IU/WKY/PO
     Route: 048
     Dates: start: 20050620
  2. PRILOSEC [Concomitant]
  3. ANALGESIC OR ANESTHETIC (UNSPECI [Concomitant]

REACTIONS (3)
  - ABDOMINAL DISTENSION [None]
  - DIARRHOEA [None]
  - FLATULENCE [None]
